FAERS Safety Report 12051157 (Version 3)
Quarter: 2016Q2

REPORT INFORMATION
  Report Type: Spontaneous
  Country: US (occurrence: US)
  Receive Date: 20160209
  Receipt Date: 20160422
  Transmission Date: 20160815
  Serious: No
  Sender: FDA-Public Use
  Company Number: US-PFIZER INC-2016065351

PATIENT
  Age: 67 Year
  Sex: Female

DRUGS (2)
  1. SUTENT [Suspect]
     Active Substance: SUNITINIB MALATE
     Indication: GASTROINTESTINAL STROMAL TUMOUR
     Dosage: 50 MG, DAILY
     Route: 048
  2. STIVARGA [Concomitant]
     Active Substance: REGORAFENIB
     Dosage: UNK

REACTIONS (7)
  - Disease progression [Unknown]
  - Hypersomnia [Unknown]
  - Tenderness [Recovering/Resolving]
  - Decreased appetite [Unknown]
  - Gastrointestinal stromal tumour [Unknown]
  - Asthenia [Unknown]
  - Laziness [Unknown]
